FAERS Safety Report 12192568 (Version 1)
Quarter: 2016Q1

REPORT INFORMATION
  Report Type: Spontaneous
  Country: CH (occurrence: CH)
  Receive Date: 20160318
  Receipt Date: 20160318
  Transmission Date: 20160526
  Serious: Yes (Death, Other)
  Sender: FDA-Public Use
  Company Number: CH-GILEAD-2016-0204209

PATIENT

DRUGS (1)
  1. ZYDELIG [Suspect]
     Active Substance: IDELALISIB
     Indication: CHRONIC LYMPHOCYTIC LEUKAEMIA
     Dosage: 150 UNKNOWN, UNK
     Route: 048
     Dates: start: 20150810, end: 20151112

REACTIONS (1)
  - Richter^s syndrome [Fatal]

NARRATIVE: CASE EVENT DATE: 2015
